FAERS Safety Report 17184942 (Version 1)
Quarter: 2019Q4

REPORT INFORMATION
  Report Type: Spontaneous
  Country: ES (occurrence: ES)
  Receive Date: 20191220
  Receipt Date: 20191220
  Transmission Date: 20200122
  Serious: Yes (Other)
  Sender: FDA-Public Use
  Company Number: ES-MYLANLABS-2019M1125788

PATIENT
  Age: 69 Year
  Sex: Male

DRUGS (1)
  1. ATORVASTATIN [Suspect]
     Active Substance: ATORVASTATIN
     Indication: DYSLIPIDAEMIA
     Dosage: 20 MILLIGRAM, QD (20 MG AL DIA)
     Route: 048
     Dates: start: 20180907, end: 20190723

REACTIONS (2)
  - Gynaecomastia [Recovering/Resolving]
  - Mastitis [Recovering/Resolving]

NARRATIVE: CASE EVENT DATE: 20190425
